FAERS Safety Report 18451909 (Version 1)
Quarter: 2020Q4

REPORT INFORMATION
  Report Type: Spontaneous
  Country: US (occurrence: US)
  Receive Date: 20201030
  Receipt Date: 20201030
  Transmission Date: 20210114
  Serious: No
  Sender: FDA-Public Use
  Company Number: None

PATIENT
  Age: 84 Year
  Sex: Female
  Weight: 43.65 kg

DRUGS (8)
  1. MULTI-VITAMIN [Concomitant]
     Active Substance: .ALPHA.-TOCOPHEROL ACETATE, DL-\ASCORBIC ACID\CYANOCOBALAMIN\FLUORIDE ION\FOLIC ACID\NIACIN\PYRIDOXINE\RIBOFLAVIN\THIAMINE\VITAMIN A\VITAMIN D
  2. OMEGA3 [Concomitant]
  3. SIMVASTATIN. [Concomitant]
     Active Substance: SIMVASTATIN
  4. ALEVE [Concomitant]
     Active Substance: NAPROXEN SODIUM
  5. VITAMIND [Concomitant]
  6. LUCENTIS [Suspect]
     Active Substance: RANIBIZUMAB
     Indication: MACULAR DEGENERATION
  7. CALCIUM [Concomitant]
     Active Substance: CALCIUM
  8. TYLENOL [Concomitant]
     Active Substance: ACETAMINOPHEN

REACTIONS (14)
  - Nausea [None]
  - Headache [None]
  - Vitreous floaters [None]
  - Chills [None]
  - Pain [None]
  - Discomfort [None]
  - Asthenia [None]
  - Eye pain [None]
  - Photophobia [None]
  - Heart rate increased [None]
  - Myalgia [None]
  - Fatigue [None]
  - Musculoskeletal stiffness [None]
  - Hypokinesia [None]

NARRATIVE: CASE EVENT DATE: 20201029
